FAERS Safety Report 15271426 (Version 1)
Quarter: 2018Q3

REPORT INFORMATION
  Report Type: Spontaneous
  Country: CA (occurrence: CA)
  Receive Date: 20180813
  Receipt Date: 20180813
  Transmission Date: 20181010
  Serious: Yes (Hospitalization)
  Sender: FDA-Public Use
  Company Number: CA-PFIZER INC-2017044699

PATIENT
  Age: 51 Year
  Sex: Female

DRUGS (7)
  1. LEVOFLOXACIN. [Suspect]
     Active Substance: LEVOFLOXACIN
     Dosage: 40 MG, UNK
     Route: 065
     Dates: start: 20160307, end: 20160321
  2. METRONIDAZOLE. [Suspect]
     Active Substance: METRONIDAZOLE
     Dosage: 500 MG, 3X/DAY
     Route: 065
     Dates: start: 20160307, end: 20160321
  3. APO?RANITIDINE [Suspect]
     Active Substance: RANITIDINE
     Dosage: UNK UNK, 2X/DAY
     Route: 065
     Dates: start: 20160307, end: 20160321
  4. METFORMIN [Concomitant]
     Active Substance: METFORMIN HYDROCHLORIDE
     Dosage: 850 MG, UNK
  5. APO?GLYBURIDE [Suspect]
     Active Substance: GLYBURIDE
     Indication: BLOOD GLUCOSE INCREASED
     Dosage: 5 MG, 2X/DAY
     Route: 065
     Dates: start: 20160307, end: 20160321
  6. PANTOPRAZOLE [Suspect]
     Active Substance: PANTOPRAZOLE
     Dosage: 40 MG, UNK
     Route: 065
     Dates: start: 20160307, end: 20160321
  7. CITALOPRAM HYDROBROMIDE. [Concomitant]
     Active Substance: CITALOPRAM HYDROBROMIDE
     Dosage: 4 MG, UNK

REACTIONS (6)
  - Blood glucose increased [Unknown]
  - Migraine [Not Recovered/Not Resolved]
  - Visual impairment [Unknown]
  - Syncope [Unknown]
  - Headache [Unknown]
  - Pneumonia [Unknown]

NARRATIVE: CASE EVENT DATE: 20160308
